FAERS Safety Report 7902149-5 (Version None)
Quarter: 2011Q4

REPORT INFORMATION
  Report Type: 
  Country: None (occurrence: None)
  Receive Date: 20111108
  Receipt Date: 20111102
  Transmission Date: 20120403
  Serious: Yes (Hospitalization)
  Sender: FDA-Public Use
  Company Number: US-BAYER-2011-106793

PATIENT
  Age: 48 Year
  Sex: Male

DRUGS (6)
  1. SULFAMETHOXAZOLE AND TRIMETHOPRIM [Concomitant]
     Indication: GASTROINTESTINAL DISORDER
  2. VANCOMYCIN [Concomitant]
     Indication: CELLULITIS
     Route: 042
  3. CLINDAMYCIN [Concomitant]
     Indication: CELLULITIS
  4. CIPRO [Suspect]
     Indication: GASTROINTESTINAL DISORDER
  5. METRONIDAZOLE [Suspect]
     Indication: GASTROINTESTINAL DISORDER
  6. SUCRALFATE [Suspect]
     Indication: GASTRIC DISORDER

REACTIONS (2)
  - CELLULITIS [None]
  - LEUKOCYTOCLASTIC VASCULITIS [None]
